FAERS Safety Report 8313573-3 (Version None)
Quarter: 2012Q2

REPORT INFORMATION
  Report Type: 
  Country: None (occurrence: None)
  Receive Date: 20120426
  Receipt Date: 20120412
  Transmission Date: 20120825
  Serious: Yes (Death, Hospitalization)
  Sender: FDA-Public Use
  Company Number: US-MYLANLABS-2012S1007724

PATIENT
  Age: 49 Year
  Sex: Female

DRUGS (1)
  1. METHOTREXATE [Suspect]
     Indication: PSORIASIS
     Dosage: 10 MG/WEEK
     Route: 048

REACTIONS (5)
  - ADULT T-CELL LYMPHOMA/LEUKAEMIA [None]
  - HEPATIC FUNCTION ABNORMAL [None]
  - LUNG INFILTRATION [None]
  - RENAL FAILURE ACUTE [None]
  - DISSEMINATED INTRAVASCULAR COAGULATION [None]
